FAERS Safety Report 12566999 (Version 1)
Quarter: 2016Q3

REPORT INFORMATION
  Report Type: Report from Study
  Country: CA (occurrence: CA)
  Receive Date: 20160718
  Receipt Date: 20160718
  Transmission Date: 20161109
  Serious: Yes (Hospitalization, Other)
  Sender: FDA-Public Use
  Company Number: CA-TAKEDA-2016TUS012148

PATIENT
  Age: 49 Year
  Sex: Male

DRUGS (3)
  1. CORTIFOAM [Concomitant]
     Active Substance: HYDROCORTISONE ACETATE
     Dosage: UNK, QD
  2. VEDOLIZUMAB [Suspect]
     Active Substance: VEDOLIZUMAB
     Indication: COLITIS ULCERATIVE
     Dosage: 300 MG, UNK
     Route: 042
     Dates: start: 20160208
  3. CODEINE [Concomitant]
     Active Substance: CODEINE
     Dosage: 30 MG, TID

REACTIONS (1)
  - Umbilical hernia [Unknown]

NARRATIVE: CASE EVENT DATE: 2016
